FAERS Safety Report 9043034 (Version 1)
Quarter: 2013Q1

REPORT INFORMATION
  Report Type: Report from Study
  Country: US (occurrence: US)
  Receive Date: 20130129
  Receipt Date: 20130129
  Transmission Date: 20140127
  Serious: No
  Sender: FDA-Public Use
  Company Number: US-ABBOTT-12P-163-0892837-00

PATIENT
  Age: 30 Year
  Sex: Male

DRUGS (9)
  1. HUMIRA 40 MG/0.8 ML PEN [Suspect]
     Indication: PSORIASIS
     Dates: start: 20111129
  2. INVEGA [Concomitant]
     Indication: SCHIZOPHRENIA
     Dosage: 9 MG DAILY
  3. BUSPAR [Concomitant]
     Indication: ANXIETY
     Dosage: DAILY
  4. COGENTIN [Concomitant]
     Indication: ADVERSE DRUG REACTION
  5. COGENTIN [Concomitant]
     Indication: PROPHYLAXIS
  6. LEXAPRO [Concomitant]
     Indication: ANTIDEPRESSANT THERAPY
     Dosage: 40 MG DAILY
  7. SEROQUEL [Concomitant]
     Indication: PSYCHOTIC DISORDER
     Dosage: 100 MG DAILY
  8. CLONAZEPAM [Concomitant]
     Indication: ANXIETY
     Dosage: 3 MG DAILY
  9. NEXIUM [Concomitant]
     Indication: PRODUCT USED FOR UNKNOWN INDICATION

REACTIONS (9)
  - Non-cardiac chest pain [Recovering/Resolving]
  - Pneumonia [Recovering/Resolving]
  - Pyrexia [Recovering/Resolving]
  - Malaise [Not Recovered/Not Resolved]
  - Pain [Not Recovered/Not Resolved]
  - Pulmonary fibrosis [Not Recovered/Not Resolved]
  - Lymph node calcification [Not Recovered/Not Resolved]
  - Productive cough [Not Recovered/Not Resolved]
  - Fungal infection [Not Recovered/Not Resolved]
